FAERS Safety Report 5738837-9 (Version None)
Quarter: 2008Q2

REPORT INFORMATION
  Report Type: 
  Country: None (occurrence: None)
  Receive Date: 20080515
  Receipt Date: 20080408
  Transmission Date: 20081010
  Serious: No
  Sender: FDA-Public Use
  Company Number: A0721646A

PATIENT
  Age: 43 Year
  Sex: Female

DRUGS (3)
  1. VERAMYST [Suspect]
     Dosage: 1SPR PER DAY
     Route: 045
  2. ESTROGEL [Concomitant]
  3. OPTIVAR [Concomitant]

REACTIONS (4)
  - BLEPHAROSPASM [None]
  - EPISTAXIS [None]
  - NASAL DRYNESS [None]
  - PHARMACEUTICAL PRODUCT COMPLAINT [None]
